FAERS Safety Report 17631315 (Version 1)
Quarter: 2020Q2

REPORT INFORMATION
  Report Type: Spontaneous
  Country: US (occurrence: US)
  Receive Date: 20200406
  Receipt Date: 20200406
  Transmission Date: 20200713
  Serious: No
  Sender: FDA-Public Use
  Company Number: None

PATIENT
  Age: 60 Year
  Sex: Male
  Weight: 83.52 kg

DRUGS (12)
  1. ONDANSETRON 8MG, ORAL [Concomitant]
  2. OXYCODONE 7.5 MG, ORAL [Concomitant]
  3. MEKTOVI [Suspect]
     Active Substance: BINIMETINIB
     Indication: LUNG NEOPLASM MALIGNANT
     Route: 048
     Dates: start: 20200121
  4. GABAPENTIN. [Concomitant]
     Active Substance: GABAPENTIN
  5. ALBUTEROL SULFATE 108 MG, INHALER [Concomitant]
  6. BRAFTOVI [Suspect]
     Active Substance: ENCORAFENIB
     Indication: LUNG NEOPLASM MALIGNANT
     Route: 048
     Dates: start: 20200121
  7. DIPHENHYDRAMINE 1% CREAM [Concomitant]
  8. LISINOPRIL 2.5 MG, ORAL [Concomitant]
  9. BRAFTOVI [Suspect]
     Active Substance: ENCORAFENIB
     Indication: MALIGNANT MELANOMA
     Route: 048
     Dates: start: 20200121
  10. TRIAMCINOLONE 0.5 % EXTERNAL [Concomitant]
  11. HYDROCORTISONE 2.5% EXTERNAL [Concomitant]
  12. VERAPAMIL HCL 120MG, ORAL [Concomitant]

REACTIONS (1)
  - Neuralgia [None]

NARRATIVE: CASE EVENT DATE: 20200406
